FAERS Safety Report 6564381-5 (Version None)
Quarter: 2010Q1

REPORT INFORMATION
  Report Type: 
  Country: None (occurrence: None)
  Receive Date: 20100201
  Receipt Date: 20100105
  Transmission Date: 20100710
  Serious: Yes (Death)
  Sender: FDA-Public Use
  Company Number: US-TYCO HEALTHCARE/MALLINCKRODT-T201000128

PATIENT
  Age: 57 Year
  Sex: Male

DRUGS (3)
  1. OXYCODONE [Suspect]
     Dosage: UNK
     Route: 048
  2. ANTIFREEZE [Suspect]
     Dosage: UNK
     Route: 048
  3. ALPRAZOLAM [Suspect]
     Dosage: UNK
     Route: 048

REACTIONS (1)
  - COMPLETED SUICIDE [None]
